FAERS Safety Report 9321860 (Version 1)
Quarter: 2013Q2

REPORT INFORMATION
  Report Type: Not Available
  Country: FR (occurrence: None)
  Receive Date: 20130528
  Receipt Date: 20130528
  Transmission Date: 20140414
  Serious: Yes (Other)
  Sender: FDA-Public Use
  Company Number: SP06683

PATIENT
  Age: 57 Year
  Sex: Female

DRUGS (1)
  1. RELISTOR (INJECTION) [Suspect]
     Indication: CONSTIPATION
     Route: 058
     Dates: start: 20130215

REACTIONS (2)
  - Escherichia bacteraemia [None]
  - Tachycardia [None]
